FAERS Safety Report 4453234-4 (Version None)
Quarter: 2004Q3

REPORT INFORMATION
  Report Type: 
  Country: None (occurrence: None)
  Receive Date: 20040920
  Receipt Date: 20040908
  Transmission Date: 20050211
  Serious: Yes (Hospitalization)
  Sender: FDA-Public Use
  Company Number: NL-JNJFOC-20030601613

PATIENT
  Sex: Female

DRUGS (3)
  1. VASCOR [Suspect]
     Indication: ARRHYTHMIA
     Route: 049
     Dates: start: 20030312, end: 20030401
  2. WARFARIN SODIUM [Concomitant]
     Indication: PROPHYLAXIS
     Route: 049
     Dates: start: 20030225
  3. SENNA LEAF [Concomitant]
     Indication: CONSTIPATION
     Dates: start: 20030325

REACTIONS (12)
  - ACTIVITIES OF DAILY LIVING IMPAIRED [None]
  - ASPARTATE AMINOTRANSFERASE INCREASED [None]
  - BASOPHIL COUNT INCREASED [None]
  - BLOOD ALKALINE PHOSPHATASE INCREASED [None]
  - BLOOD LACTATE DEHYDROGENASE INCREASED [None]
  - CAROTID ARTERY OCCLUSION [None]
  - EOSINOPHIL COUNT INCREASED [None]
  - GAMMA-GLUTAMYLTRANSFERASE INCREASED [None]
  - HEPATIC FUNCTION ABNORMAL [None]
  - HYPERAMMONAEMIA [None]
  - LEUKOENCEPHALOPATHY [None]
  - WHITE BLOOD CELL COUNT INCREASED [None]
